FAERS Safety Report 6623523-3 (Version None)
Quarter: 2010Q1

REPORT INFORMATION
  Report Type: 
  Country: None (occurrence: None)
  Receive Date: 20100223
  Receipt Date: 20091029
  Transmission Date: 20100710
  Serious: No
  Sender: FDA-Public Use
  Company Number: 8054019

PATIENT
  Sex: Male
  Weight: 99 kg

DRUGS (13)
  1. CERTOLIZUMAB PEGOL (UCB, INC) [Suspect]
     Indication: CROHN'S DISEASE
     Dosage: 400 MG, DOSE FREQ.: ONCE MONTHLY SUBCUTANEOUS
     Route: 058
     Dates: start: 20090101
  2. LYRICA [Concomitant]
  3. TOPAMAX [Concomitant]
  4. CYMBALTA [Concomitant]
  5. TRAZODONE HCL [Concomitant]
  6. FLEXERIL [Concomitant]
  7. ABILIFY [Concomitant]
  8. RITALIN [Concomitant]
  9. LEVOTHYROXINE SODIUM [Concomitant]
  10. XYZAL [Concomitant]
  11. DILAUDID [Concomitant]
  12. VITAMIN B-12 [Concomitant]
  13. TESTOSTERONE [Concomitant]

REACTIONS (9)
  - BLISTER [None]
  - LYMPHADENOPATHY [None]
  - OCULAR ICTERUS [None]
  - ORAL HERPES [None]
  - POLLAKIURIA [None]
  - PYREXIA [None]
  - RASH PUSTULAR [None]
  - WEIGHT INCREASED [None]
  - YELLOW SKIN [None]
